FAERS Safety Report 20347020 (Version 1)
Quarter: 2022Q1

REPORT INFORMATION
  Report Type: Report from Study
  Country: CA (occurrence: CA)
  Receive Date: 20220118
  Receipt Date: 20220118
  Transmission Date: 20220423
  Serious: Yes (Other)
  Sender: FDA-Public Use
  Company Number: CA-JNJFOC-20220124583

PATIENT
  Sex: Female

DRUGS (1)
  1. REMICADE [Suspect]
     Active Substance: INFLIXIMAB
     Indication: Crohn^s disease
     Route: 042
     Dates: start: 20201022

REACTIONS (7)
  - Haematochezia [Unknown]
  - Nausea [Unknown]
  - Skin infection [Recovered/Resolved]
  - COVID-19 [Recovered/Resolved]
  - Anorectal discomfort [Unknown]
  - Anal pruritus [Unknown]
  - Diarrhoea [Unknown]
